FAERS Safety Report 20511498 (Version 1)
Quarter: 2022Q1

REPORT INFORMATION
  Report Type: Spontaneous
  Country: CN (occurrence: CN)
  Receive Date: 20220224
  Receipt Date: 20220224
  Transmission Date: 20220423
  Serious: Yes (Other)
  Sender: FDA-Public Use
  Company Number: CN-GLAXOSMITHKLINE-CN2022APC030736

PATIENT
  Age: 10 Year
  Sex: Female
  Weight: 50 kg

DRUGS (1)
  1. LAMICTAL [Suspect]
     Active Substance: LAMOTRIGINE
     Indication: Epilepsy
     Dosage: 25 MG, BID
     Dates: start: 20220119, end: 20220208

REACTIONS (8)
  - Rash [Recovering/Resolving]
  - Rash erythematous [Recovering/Resolving]
  - Oral mucosal eruption [Recovering/Resolving]
  - Erythema multiforme [Recovering/Resolving]
  - Drug eruption [Recovering/Resolving]
  - Oral mucosal blistering [Recovering/Resolving]
  - Oral pain [Recovering/Resolving]
  - Eating disorder [Recovering/Resolving]

NARRATIVE: CASE EVENT DATE: 20220204
